FAERS Safety Report 5204132-X (Version None)
Quarter: 2007Q1

REPORT INFORMATION
  Report Type: 
  Country: None (occurrence: None)
  Receive Date: 20070110
  Receipt Date: 20060112
  Transmission Date: 20070707
  Serious: Yes (Disabling)
  Sender: FDA-Public Use
  Company Number: US-BRISTOL-MYERS SQUIBB COMPANY-13208475

PATIENT
  Age: 45 Year
  Sex: Male

DRUGS (2)
  1. ABILIFY [Suspect]
     Indication: DYSTHYMIC DISORDER
     Dosage: DOSAGE: INITIATED AT 5 MG DAILY ON 16-NOV-2005 X 7 DAYS; INCREASED TO 10 MG DAILY ON 23-NOV-2005
     Route: 048
     Dates: start: 20051116, end: 20051207
  2. TESTOSTERONE [Concomitant]
     Indication: BLOOD TESTOSTERONE DECREASED

REACTIONS (1)
  - ASTHMA [None]
